FAERS Safety Report 8300555-0 (Version None)
Quarter: 2012Q2

REPORT INFORMATION
  Report Type: 
  Country: None (occurrence: None)
  Receive Date: 20120417
  Receipt Date: 20120404
  Transmission Date: 20120825
  Serious: Yes (Death, Hospitalization, Other)
  Sender: FDA-Public Use
  Company Number: 2009AL002412

PATIENT
  Age: 76 Year
  Sex: Female
  Weight: 63.9572 kg

DRUGS (78)
  1. MEGACE [Concomitant]
  2. URSODIOL [Concomitant]
  3. PROZAC [Concomitant]
  4. BACTRIM [Concomitant]
  5. ACETAMINOPHEN [Concomitant]
  6. PANTOPRAZOLE [Concomitant]
  7. ACCUPRIL [Concomitant]
  8. AMBIEN [Concomitant]
  9. ROCEPHIN [Concomitant]
  10. CHOLESTYRAMINE [Concomitant]
  11. LEVBID [Concomitant]
  12. MORPHINE [Concomitant]
  13. DIGOXIN [Suspect]
     Indication: CARDIAC FAILURE CONGESTIVE
     Dosage: 0.125 MG;QD;PO
     Route: 048
     Dates: start: 20040608, end: 20080501
  14. DYAZIDE [Concomitant]
  15. ADVENT [Concomitant]
  16. HEPARIN [Concomitant]
  17. LEVBID [Concomitant]
  18. FEROCON [Concomitant]
  19. CARDURA [Concomitant]
  20. FERROUS GLUCONATE [Concomitant]
  21. FLAYGL [Concomitant]
  22. NIFEREX [Concomitant]
  23. TRINSICON [Concomitant]
  24. KLOR-CON [Concomitant]
  25. POTASSIUM CHLORIDE [Concomitant]
  26. LOVENOX [Concomitant]
  27. PROPOXYPHENE HYDROCHLORIDE [Concomitant]
  28. ENOXAPARIN SODIUM [Concomitant]
  29. ACTIGALL [Concomitant]
  30. ARICEPT [Concomitant]
  31. FLORINEF [Concomitant]
  32. INDOMETHACIN [Concomitant]
  33. LEVAQUIN [Concomitant]
  34. MARNATAL VITAMINS [Concomitant]
  35. METOPROLOL TARTRATE [Concomitant]
  36. PREVACID [Concomitant]
  37. SYNTHROID [Concomitant]
  38. VASOTEC [Concomitant]
  39. VISTARIL [Concomitant]
  40. ASPIRIN [Concomitant]
  41. HYDROCHLOROTHIAZIDE [Concomitant]
  42. BUTT PASTE [Concomitant]
  43. CALCITRIOL [Concomitant]
  44. CALCIUM CARBONATE [Concomitant]
  45. COGENTIN [Concomitant]
  46. RISPERDAL [Concomitant]
  47. TRAZODONE HCL [Concomitant]
  48. CYPROHEPTADINE HCL [Concomitant]
  49. PLAVIX [Concomitant]
  50. PAXIL [Concomitant]
  51. FLUDROCORTISONE ACETATE [Concomitant]
  52. TYLENOL W/ CODEINE NO. 3 [Concomitant]
  53. COUMADIN [Concomitant]
  54. DOXYCYCLINE [Concomitant]
  55. EXELON [Concomitant]
  56. FLEXERIL [Concomitant]
  57. LOMOTIL [Concomitant]
  58. LOTREL [Concomitant]
  59. MELLARIL [Concomitant]
  60. VITAMIN E [Concomitant]
  61. WELLBUTRIN [Concomitant]
  62. DARVOCET [Concomitant]
  63. KAY CIEL DURA-TABS [Concomitant]
  64. KAYEXALATE [Concomitant]
  65. LASIX [Concomitant]
  66. LORTAB [Concomitant]
  67. MEGACE [Concomitant]
  68. FLUCONAZOLE [Concomitant]
  69. METRONIDAZOLE [Concomitant]
  70. TRIAMCINOLONE/MYCOSTATIN [Concomitant]
  71. ELDEPRYL [Concomitant]
  72. KLONOPNI [Concomitant]
  73. LORAZEPAM [Concomitant]
  74. MAXZIDE [Concomitant]
  75. PANRITIS FORTE [Concomitant]
  76. PRILOSEC [Concomitant]
  77. PROTONIX [Concomitant]
  78. TOPROL-XL [Concomitant]

REACTIONS (25)
  - DEVICE RELATED INFECTION [None]
  - AZOTAEMIA [None]
  - VOMITING [None]
  - ASTHENIA [None]
  - CEREBRAL ISCHAEMIA [None]
  - DECREASED APPETITE [None]
  - ATELECTASIS [None]
  - HYPOALBUMINAEMIA [None]
  - DIZZINESS [None]
  - HYPOGLYCAEMIA [None]
  - MITRAL VALVE INCOMPETENCE [None]
  - ATRIAL FIBRILLATION [None]
  - GASTRITIS [None]
  - ATRIAL FLUTTER [None]
  - DIARRHOEA [None]
  - PYREXIA [None]
  - GASTROENTERITIS [None]
  - CAROTID ARTERY STENOSIS [None]
  - RENAL FAILURE [None]
  - HYPOKALAEMIA [None]
  - TRICUSPID VALVE INCOMPETENCE [None]
  - RENAL TUBULAR ACIDOSIS [None]
  - DEHYDRATION [None]
  - FAILURE TO THRIVE [None]
  - HEART RATE INCREASED [None]
